FAERS Safety Report 26140795 (Version 1)
Quarter: 2025Q4

REPORT INFORMATION
  Report Type: Spontaneous
  Country: GB (occurrence: GB)
  Receive Date: 20251210
  Receipt Date: 20251210
  Transmission Date: 20260118
  Serious: Yes (Other)
  Sender: SANOFI AVENTIS
  Company Number: GB-KYOWAKIRIN-2021BKK012925

PATIENT
  Sex: Male

DRUGS (4)
  1. CLOPIDOGREL BISULFATE [Suspect]
     Active Substance: CLOPIDOGREL BISULFATE
     Indication: Product used for unknown indication
     Dosage: UNK
     Dates: start: 202009
  2. CRYSVITA [Suspect]
     Active Substance: BUROSUMAB-TWZA
     Indication: Product used for unknown indication
     Dosage: 60 MG, Q4W (EVERY 28 DAYS)
  3. ASPIRIN [Concomitant]
     Active Substance: ASPIRIN
  4. BISOPROLOL [Concomitant]
     Active Substance: BISOPROLOL
     Dosage: UNK

REACTIONS (9)
  - Epilepsy [Not Recovered/Not Resolved]
  - Musculoskeletal pain [Not Recovered/Not Resolved]
  - Bone pain [Recovered/Resolved]
  - Injection site bruising [Unknown]
  - Spinal pain [Unknown]
  - Neck pain [Unknown]
  - Malaise [Recovered/Resolved]
  - Contusion [Unknown]
  - Contusion [Unknown]
